FAERS Safety Report 11822816 (Version 1)
Quarter: 2015Q4

REPORT INFORMATION
  Report Type: Spontaneous
  Country: US (occurrence: US)
  Receive Date: 20151210
  Receipt Date: 20151210
  Transmission Date: 20160305
  Serious: No
  Sender: FDA-Public Use
  Company Number: US-JNJFOC-20150618313

PATIENT
  Sex: Male

DRUGS (5)
  1. VITAMINS [Concomitant]
     Active Substance: VITAMINS
  2. KLONOPIN [Concomitant]
     Active Substance: CLONAZEPAM
  3. IMBRUVICA [Suspect]
     Active Substance: IBRUTINIB
     Indication: LYMPHOMA
     Route: 048
     Dates: start: 20140730
  4. OXYCODONE [Concomitant]
     Active Substance: OXYCODONE
  5. PREVACID [Concomitant]
     Active Substance: LANSOPRAZOLE

REACTIONS (3)
  - Drug dose omission [Unknown]
  - Nausea [Unknown]
  - Fear [Unknown]
